FAERS Safety Report 6713204-X (Version None)
Quarter: 2010Q2

REPORT INFORMATION
  Report Type: 
  Country: None (occurrence: None)
  Receive Date: 20100506
  Receipt Date: 20100424
  Transmission Date: 20101027
  Serious: Yes (Hospitalization)
  Sender: FDA-Public Use
  Company Number: PHHY2010MX26349

PATIENT
  Age: 63 Year
  Sex: Male

DRUGS (2)
  1. DIOVAN [Suspect]
     Indication: HYPERTENSION
     Dosage: 1 DF, UNK
     Route: 048
  2. DIOVAN [Suspect]
     Dosage: 2 DF, UNK
     Route: 048

REACTIONS (3)
  - ARRHYTHMIA [None]
  - HYPERTENSION [None]
  - LIVER DISORDER [None]
